FAERS Safety Report 7007377-1 (Version None)
Quarter: 2010Q3

REPORT INFORMATION
  Report Type: 
  Country: None (occurrence: None)
  Receive Date: 20100922
  Receipt Date: 20100910
  Transmission Date: 20110219
  Serious: Yes (Other)
  Sender: FDA-Public Use
  Company Number: SE-PFIZER INC-2010091503

PATIENT
  Age: 61 Year
  Sex: Female

DRUGS (4)
  1. AROMASIN [Suspect]
     Dosage: UNK
     Dates: start: 20100126
  2. ARIMIDEX [Suspect]
     Dosage: UNK
     Dates: start: 20080928, end: 20100125
  3. TRAMADOL [Concomitant]
     Dosage: UNK
  4. ALVEDON [Concomitant]
     Dosage: UNK

REACTIONS (2)
  - MUSCULOSKELETAL STIFFNESS [None]
  - PAIN IN EXTREMITY [None]
